FAERS Safety Report 6575283-2 (Version None)
Quarter: 2010Q1

REPORT INFORMATION
  Report Type: 
  Country: None (occurrence: None)
  Receive Date: 20100209
  Receipt Date: 20100129
  Transmission Date: 20100710
  Serious: Yes (Other)
  Sender: FDA-Public Use
  Company Number: JP-ROCHE-677722

PATIENT
  Sex: Female

DRUGS (2)
  1. TAMIFLU [Suspect]
     Route: 048
     Dates: start: 20091214, end: 20091214
  2. TAMIFLU [Suspect]
     Route: 048
     Dates: start: 20091215, end: 20091215

REACTIONS (1)
  - ABNORMAL BEHAVIOUR [None]
